FAERS Safety Report 19073454 (Version 1)
Quarter: 2021Q1

REPORT INFORMATION
  Report Type: Spontaneous
  Country: PL (occurrence: PL)
  Receive Date: 20210330
  Receipt Date: 20210330
  Transmission Date: 20210420
  Serious: Yes (Other)
  Sender: FDA-Public Use
  Company Number: NVSC2021PL065179

PATIENT
  Age: 30 Year
  Sex: Male

DRUGS (8)
  1. CANDESARTAN. [Suspect]
     Active Substance: CANDESARTAN
     Indication: PRODUCT USED FOR UNKNOWN INDICATION
     Dosage: 800 MG (1/2 TAB)
     Route: 065
  2. AZITHROMYCIN ANHYDROUS. [Suspect]
     Active Substance: AZITHROMYCIN ANHYDROUS
     Indication: PRODUCT USED FOR UNKNOWN INDICATION
     Dosage: 500 MG
     Route: 065
  3. TORASEMIDE [Suspect]
     Active Substance: TORSEMIDE
     Indication: PRODUCT USED FOR UNKNOWN INDICATION
     Dosage: 100 MG (2X1 TAB)
     Route: 065
  4. TORASEMIDE [Suspect]
     Active Substance: TORSEMIDE
     Dosage: 10 MG (2X1 TAB) (1 TAB IN MORNING)
     Route: 065
  5. CANDESARTAN. [Suspect]
     Active Substance: CANDESARTAN
     Dosage: 8 MG (1/2 TAB)
     Route: 065
  6. SACUBITRIL,VALSARTAN [Suspect]
     Active Substance: SACUBITRIL\VALSARTAN
     Indication: PRODUCT USED FOR UNKNOWN INDICATION
     Dosage: UNK (24/26MG 2X1TAB)
     Route: 065
  7. METOPROLOL. [Suspect]
     Active Substance: METOPROLOL
     Indication: PRODUCT USED FOR UNKNOWN INDICATION
     Dosage: UNK (23.75 MG 2X1TAB)
     Route: 065
  8. VITAMIN D [Suspect]
     Active Substance: VITAMIN D NOS
     Indication: PRODUCT USED FOR UNKNOWN INDICATION
     Dosage: UNK (2000 U 1X1 TAB)
     Route: 065

REACTIONS (6)
  - General physical health deterioration [Unknown]
  - Exercise tolerance decreased [Unknown]
  - Pulmonary congestion [Unknown]
  - Heart rate increased [Unknown]
  - Ejection fraction abnormal [Unknown]
  - Cough [Unknown]
